FAERS Safety Report 7690254-0 (Version None)
Quarter: 2011Q3

REPORT INFORMATION
  Report Type: 
  Country: None (occurrence: None)
  Receive Date: 20110818
  Receipt Date: 20110815
  Transmission Date: 20111222
  Serious: No
  Sender: FDA-Public Use
  Company Number: US-PFIZER INC-2011103595

PATIENT
  Sex: Female

DRUGS (1)
  1. PRISTIQ [Suspect]
     Indication: DEPRESSION
     Dosage: UNK
     Route: 048

REACTIONS (5)
  - DYSPEPSIA [None]
  - FATIGUE [None]
  - NAUSEA [None]
  - HEADACHE [None]
  - CONSTIPATION [None]
